FAERS Safety Report 6440558-4 (Version None)
Quarter: 2009Q4

REPORT INFORMATION
  Report Type: 
  Country: None (occurrence: None)
  Receive Date: 20091113
  Receipt Date: 20091102
  Transmission Date: 20100525
  Serious: Yes (Death)
  Sender: FDA-Public Use
  Company Number: US-WATSON-2009-09412

PATIENT

DRUGS (6)
  1. FENTANYL-50 [Suspect]
     Indication: BACK PAIN
     Dosage: 1 PATCH Q 72 HOURS
     Route: 062
     Dates: start: 20091029, end: 20091102
  2. OXYCODONE HCL AND ACETAMINOPHEN [Suspect]
     Indication: PAIN
     Dosage: 1 TABLET, TID
     Route: 048
     Dates: start: 20090101, end: 20090301
  3. LYRICA [Suspect]
     Indication: PAIN
     Dosage: 1 TABLET, QPM
     Route: 048
     Dates: start: 20091010
  4. ZOLPIDEM [Suspect]
     Indication: INSOMNIA
     Dosage: 1 TABLET, DAILY
     Route: 048
     Dates: start: 20091027
  5. TRIFLUOPERAZINE HCL [Suspect]
     Indication: SCHIZOPHRENIA
     Dosage: 1 TABLET, BID
     Route: 048
     Dates: end: 20090801
  6. OXYCONTIN [Suspect]
     Indication: PAIN
     Dosage: 1 TABLET, TID
     Route: 048
     Dates: end: 20090301

REACTIONS (1)
  - DEATH [None]
